FAERS Safety Report 5598142-0 (Version None)
Quarter: 2008Q1

REPORT INFORMATION
  Report Type: 
  Country: None (occurrence: None)
  Receive Date: 20080117
  Receipt Date: 20080117
  Transmission Date: 20080703
  Serious: No
  Sender: FDA-Public Use
  Company Number: None

PATIENT
  Sex: Female
  Weight: 85.3 kg

DRUGS (3)
  1. CYTARABINE [Suspect]
     Dosage: 1372 MG
  2. DAUNORUBICIN HCL [Suspect]
     Dosage: 529.2 MG
  3. LEUKINE [Suspect]
     Dosage: 5000 MCG

REACTIONS (3)
  - APHASIA [None]
  - OXYGEN SATURATION DECREASED [None]
  - PNEUMONIA [None]
